FAERS Safety Report 11449214 (Version 1)
Quarter: 2015Q3

REPORT INFORMATION
  Report Type: Spontaneous
  Country: US (occurrence: US)
  Receive Date: 20150902
  Receipt Date: 20150902
  Transmission Date: 20151125
  Serious: Yes (Hospitalization)
  Sender: FDA-Public Use
  Company Number: US-EMD SERONO-8040159

PATIENT
  Age: 64 Year
  Sex: Female

DRUGS (1)
  1. REBIF [Suspect]
     Active Substance: INTERFERON BETA-1A
     Indication: MULTIPLE SCLEROSIS
     Dosage: 0.5 ML
     Route: 058

REACTIONS (4)
  - Aphonia [Unknown]
  - Depression [Not Recovered/Not Resolved]
  - Flank pain [Not Recovered/Not Resolved]
  - Monoplegia [Unknown]

NARRATIVE: CASE EVENT DATE: 201406
